FAERS Safety Report 5047211-2 (Version None)
Quarter: 2006Q3

REPORT INFORMATION
  Report Type: 
  Country: None (occurrence: None)
  Receive Date: 20060703
  Receipt Date: 20060623
  Transmission Date: 20061208
  Serious: Yes (Other)
  Sender: FDA-Public Use
  Company Number: 2006000898

PATIENT
  Sex: Male

DRUGS (1)
  1. TARCEVA [Suspect]
     Indication: SQUAMOUS CELL CARCINOMA
     Dosage: 150 MG (QD), ORAL; 100 MG (QD), ORAL
     Route: 048
     Dates: start: 20060301

REACTIONS (3)
  - ANAPHYLACTOID REACTION [None]
  - PHARYNGEAL ERYTHEMA [None]
  - RASH [None]
